FAERS Safety Report 7769562-0 (Version None)
Quarter: 2011Q3

REPORT INFORMATION
  Report Type: 
  Country: None (occurrence: None)
  Receive Date: 20110922
  Receipt Date: 20100105
  Transmission Date: 20111222
  Serious: No
  Sender: FDA-Public Use
  Company Number: US-ASTRAZENECA-2009SE12165

PATIENT
  Age: 17782 Day
  Sex: Male
  Weight: 117.9 kg

DRUGS (12)
  1. ZYPREXA [Concomitant]
     Dates: start: 20060829
  2. MECLIZINE [Concomitant]
  3. RISPERDAL [Concomitant]
     Dates: start: 20020101
  4. SKELAXIN [Concomitant]
  5. NEURONTIN [Concomitant]
     Dosage: 600 MG 11/2 TID
     Dates: start: 20070205
  6. SEROQUEL [Suspect]
     Dosage: 50-100 MG
     Route: 048
     Dates: start: 20080122, end: 20090203
  7. PROZAC [Concomitant]
     Indication: DEPRESSION
     Dosage: 20 MG 1 TID, 20 MG  3 TABLETS TID, FLUCTUATING DOSE
  8. NAPROXEN [Concomitant]
  9. ABILIFY [Concomitant]
     Dates: start: 20070205
  10. SIMVASTATIN [Concomitant]
  11. SEROQUEL [Suspect]
     Indication: BIPOLAR DISORDER
     Dosage: 50 MG TAPERING DOSE, 50 MG 2 BID
     Route: 048
     Dates: start: 20071029
  12. ZYPREXA [Concomitant]
     Dates: start: 20030101

REACTIONS (6)
  - BLOOD CHOLESTEROL INCREASED [None]
  - BLOOD TRIGLYCERIDES INCREASED [None]
  - DIABETES MELLITUS [None]
  - DIABETIC COMPLICATION [None]
  - TYPE 1 DIABETES MELLITUS [None]
  - TYPE 2 DIABETES MELLITUS [None]
